FAERS Safety Report 8154829-7 (Version None)
Quarter: 2012Q1

REPORT INFORMATION
  Report Type: 
  Country: None (occurrence: None)
  Receive Date: 20120221
  Receipt Date: 20120214
  Transmission Date: 20120608
  Serious: Yes (Hospitalization)
  Sender: FDA-Public Use
  Company Number: PHEH2011US06439

PATIENT
  Sex: Male
  Weight: 86.4 kg

DRUGS (13)
  1. LOPRESSOR [Concomitant]
     Dosage: 1.5 DF, BID
     Route: 048
  2. PROCHLORPERAZINE [Concomitant]
     Dosage: 1 DF, FOUR TIMES A DAY
     Route: 048
  3. EXJADE [Suspect]
     Indication: HAEMOSIDEROSIS
     Dosage: 1500 MG PER DAY
     Route: 048
     Dates: start: 20110607, end: 20111001
  4. PRILOSEC [Concomitant]
  5. SULFAMETHOXAZOLE + TRIMETHOPRIM [Concomitant]
     Dosage: 1 DF, BID
     Route: 048
  6. AMBIEN [Concomitant]
     Dosage: 10 MG PER DAY
     Route: 048
  7. FERRIPROX [Concomitant]
     Dosage: 3 DF, TID
     Route: 048
  8. ACYCLOVIR [Concomitant]
     Dosage: 1 DF EVERY 12 HOURS
     Route: 048
  9. DILTIAZEM HCL [Concomitant]
     Dosage: 180 MG PER 24 HOURS
     Route: 048
  10. FLUCONAZOLE [Concomitant]
     Dosage: 100 MG EVERY DAY
     Route: 048
  11. CLARITIN [Concomitant]
     Dosage: 10 MG EVERY DAY
     Route: 048
  12. OXYCODONE HCL [Concomitant]
     Indication: PAIN
     Dosage: 2 DF EVERY 4 HOURS PRN
     Route: 048
  13. PREDNISOLONE [Concomitant]
     Dosage: 1 DRP, IN RIGHT EYE FOUR TIMES A DAY
     Route: 047

REACTIONS (3)
  - DRUG HYPERSENSITIVITY [None]
  - RENAL FAILURE [None]
  - PANCREATITIS ACUTE [None]
